FAERS Safety Report 4387386-1 (Version None)
Quarter: 2004Q2

REPORT INFORMATION
  Report Type: 
  Country: None (occurrence: None)
  Receive Date: 20040630
  Receipt Date: 20040420
  Transmission Date: 20050107
  Serious: No
  Sender: FDA-Public Use
  Company Number: US-GLAXOSMITHKLINE-A0507657A

PATIENT
  Age: 12 Year
  Sex: Male

DRUGS (4)
  1. ADVAIR HFA [Suspect]
     Indication: ASTHMA
     Dosage: 100MCG TWICE PER DAY
     Route: 055
     Dates: start: 20040201, end: 20040202
  2. ALBUTEROL [Concomitant]
  3. FLOVENT [Concomitant]
  4. CLARITIN [Concomitant]

REACTIONS (2)
  - HOARSENESS [None]
  - RASH [None]
